FAERS Safety Report 22177107 (Version 1)
Quarter: 2023Q2

REPORT INFORMATION
  Report Type: Spontaneous
  Country: CN (occurrence: None)
  Receive Date: 20230405
  Receipt Date: 20230405
  Transmission Date: 20230722
  Serious: Yes (Other)
  Sender: FDA-Public Use
  Company Number: 2023A076049

PATIENT
  Age: 30 Year
  Sex: Female

DRUGS (1)
  1. OLAPARIB [Suspect]
     Active Substance: OLAPARIB
     Indication: Drug withdrawal maintenance therapy
     Route: 048

REACTIONS (1)
  - Ovarian cancer recurrent [Recovering/Resolving]
